FAERS Safety Report 10615818 (Version 3)
Quarter: 2015Q1

REPORT INFORMATION
  Report Type: Report from Study
  Country: US (occurrence: US)
  Receive Date: 20141201
  Receipt Date: 20150212
  Transmission Date: 20150720
  Serious: Yes (Other)
  Sender: FDA-Public Use
  Company Number: US-JNJFOC-20141117982

PATIENT
  Age: 65 Year
  Sex: Female
  Weight: 58.97 kg

DRUGS (1)
  1. REMICADE [Suspect]
     Active Substance: INFLIXIMAB
     Indication: CROHN^S DISEASE
     Route: 042
     Dates: start: 201106

REACTIONS (6)
  - Small intestinal resection [Recovering/Resolving]
  - Bone marrow disorder [Unknown]
  - Serum ferritin decreased [Recovering/Resolving]
  - Intestinal resection [Recovering/Resolving]
  - Red blood cell count decreased [Recovering/Resolving]
  - Resection of rectum [Unknown]

NARRATIVE: CASE EVENT DATE: 201407
